FAERS Safety Report 5762839-X (Version None)
Quarter: 2008Q2

REPORT INFORMATION
  Report Type: 
  Country: None (occurrence: None)
  Receive Date: 20080609
  Receipt Date: 20080411
  Transmission Date: 20081010
  Serious: Yes (Hospitalization, Other)
  Sender: FDA-Public Use
  Company Number: PHBS2008DE04064

PATIENT
  Age: 22 Year
  Sex: Female

DRUGS (4)
  1. OXYTOCIN [Suspect]
     Dosage: 3 U, UNK
     Route: 042
  2. METOPROLOL TARTRATE [Concomitant]
     Dosage: 9 MG, UNK
     Route: 042
  3. MIDAZOLAM HCL [Concomitant]
     Dosage: 4.5 MG, UNK
     Route: 042
  4. BUPIVACAINE [Concomitant]
     Indication: SPINAL ANAESTHESIA

REACTIONS (6)
  - BLOOD CREATINE PHOSPHOKINASE INCREASED [None]
  - BLOOD CREATINE PHOSPHOKINASE MB INCREASED [None]
  - BLOOD PRESSURE DECREASED [None]
  - CHEST PAIN [None]
  - MYOCARDIAL INFARCTION [None]
  - TROPONIN T INCREASED [None]
